FAERS Safety Report 19181728 (Version 1)
Quarter: 2021Q2

REPORT INFORMATION
  Report Type: Spontaneous
  Country: JP (occurrence: JP)
  Receive Date: 20210426
  Receipt Date: 20210426
  Transmission Date: 20210717
  Serious: Yes (Hospitalization, Other)
  Sender: FDA-Public Use
  Company Number: JP-009507513-2104JPN001753J

PATIENT
  Age: 8 Decade

DRUGS (3)
  1. PEMETREXED DISODIUM [Concomitant]
     Active Substance: PEMETREXED DISODIUM
     Dosage: UNK
     Route: 051
     Dates: start: 20210407, end: 202104
  2. KEYTRUDA [Suspect]
     Active Substance: PEMBROLIZUMAB
     Indication: LUNG ADENOCARCINOMA
     Dosage: 200 MILLIGRAM, Q3W
     Route: 041
     Dates: start: 20210407, end: 20210407
  3. CARBOPLATIN. [Concomitant]
     Active Substance: CARBOPLATIN
     Dosage: UNK
     Route: 041
     Dates: start: 20210407, end: 202104

REACTIONS (9)
  - Guillain-Barre syndrome [Unknown]
  - Altered state of consciousness [Unknown]
  - Hepatic function abnormal [Unknown]
  - Encephalitis autoimmune [Unknown]
  - Movement disorder [Unknown]
  - Pyrexia [Unknown]
  - Drug eruption [Unknown]
  - Encephalitis [Unknown]
  - Meningism [Unknown]

NARRATIVE: CASE EVENT DATE: 202104
